FAERS Safety Report 15374139 (Version 3)
Quarter: 2019Q3

REPORT INFORMATION
  Report Type: Spontaneous
  Country: US (occurrence: US)
  Receive Date: 20180912
  Receipt Date: 20190701
  Transmission Date: 20191004
  Serious: Yes (Other)
  Sender: FDA-Public Use
  Company Number: US-PFIZER INC-2017421540

PATIENT
  Age: 49 Year
  Sex: Male
  Weight: 61.23 kg

DRUGS (8)
  1. CEFOXITIN [Concomitant]
     Active Substance: CEFOXITIN SODIUM
     Indication: LUNG INFECTION
     Dosage: UNK
     Dates: start: 20170928
  2. ZYVOX [Suspect]
     Active Substance: LINEZOLID
     Dosage: 600 MG, DAILY
     Dates: start: 201710, end: 201809
  3. CLARITHROMYCIN. [Concomitant]
     Active Substance: CLARITHROMYCIN
     Indication: LUNG INFECTION
     Dosage: UNK (FOR 5 WEEKS)
     Dates: start: 20170929
  4. AMIKACIN. [Concomitant]
     Active Substance: AMIKACIN
     Indication: LUNG INFECTION
     Dosage: UNK (FOR 5 WEEKS)
     Dates: start: 20170928
  5. MINOCYCLINE [Concomitant]
     Active Substance: MINOCYCLINE HYDROCHLORIDE
     Dosage: UNK
     Dates: start: 201710, end: 201809
  6. ZYVOX [Suspect]
     Active Substance: LINEZOLID
     Indication: LUNG INFECTION
     Dosage: 600MG EVERY 24HRS FOR 5 WEEKS BY MOUTH
     Route: 048
     Dates: start: 20170929
  7. ZYVOX [Suspect]
     Active Substance: LINEZOLID
     Indication: MYCOBACTERIUM ABSCESSUS INFECTION
     Dosage: 600 MG, 2X/DAY
     Route: 048
  8. MINOCYCLINE [Concomitant]
     Active Substance: MINOCYCLINE HYDROCHLORIDE
     Indication: MYCOBACTERIUM ABSCESSUS INFECTION
     Dosage: 200 MG, DAILY (100 MG 2  A DAY)
     Dates: start: 20171120, end: 201809

REACTIONS (9)
  - Nerve injury [Unknown]
  - Demyelination [Unknown]
  - Off label use [Unknown]
  - Product use in unapproved indication [Unknown]
  - Pain [Unknown]
  - Gait disturbance [Unknown]
  - Neuropathy peripheral [Not Recovered/Not Resolved]
  - Product prescribing issue [Unknown]
  - Insomnia [Unknown]

NARRATIVE: CASE EVENT DATE: 20170929
